FAERS Safety Report 6980275-5 (Version None)
Quarter: 2010Q3

REPORT INFORMATION
  Report Type: 
  Country: None (occurrence: None)
  Receive Date: 20100914
  Receipt Date: 20100909
  Transmission Date: 20110219
  Serious: Yes (Hospitalization, Other)
  Sender: FDA-Public Use
  Company Number: FR-BAYER-201018314GPV

PATIENT
  Age: 78 Year
  Sex: Male

DRUGS (13)
  1. SORAFENIB [Suspect]
     Indication: RENAL CELL CARCINOMA
     Route: 048
     Dates: start: 20090123
  2. SORAFENIB [Suspect]
     Dosage: TOTAL DAILY DOSE: 800 MG
     Route: 048
     Dates: start: 20080903, end: 20080908
  3. SORAFENIB [Suspect]
     Dosage: TOTAL DAILY DOSE: 800 MG
     Route: 048
     Dates: start: 20080930, end: 20081029
  4. SORAFENIB [Suspect]
     Dosage: TOTAL DAILY DOSE: 600 MG
     Route: 048
     Dates: start: 20081230, end: 20090122
  5. SORAFENIB [Suspect]
     Dosage: TOTAL DAILY DOSE: 1200 MG
     Route: 048
     Dates: start: 20081029, end: 20081125
  6. SORAFENIB [Suspect]
     Dosage: TOTAL DAILY DOSE: 800 MG
     Route: 048
     Dates: start: 20081201, end: 20081219
  7. SERC [Concomitant]
     Indication: VERTIGO
     Dosage: TOTAL DAILY DOSE: 24 MG
     Route: 048
  8. LOXEN [Concomitant]
     Indication: HYPERTENSION
     Dosage: TOTAL DAILY DOSE: 100 MG
     Route: 048
  9. XALATAN [Concomitant]
     Indication: GLAUCOMA
     Dosage: TOTAL DAILY DOSE: 1 GTT
     Dates: start: 20080925
  10. FORTZAAR [Concomitant]
     Indication: HYPERTENSION
     Dosage: TOTAL DAILY DOSE: 100 MG
     Route: 048
     Dates: start: 20080917
  11. EUPRESSYL [Concomitant]
     Indication: HYPERTENSION
     Dosage: TOTAL DAILY DOSE: 120 MG
     Route: 048
     Dates: start: 20080925
  12. HYPERIUM [Concomitant]
     Indication: HYPERTENSION
     Dosage: TOTAL DAILY DOSE: 1 MG
     Route: 048
     Dates: start: 20081101
  13. ALUMINUM HYDROXIDE AND MAGNESIUM TRISILICATE [Concomitant]
     Indication: DIARRHOEA
     Route: 048
     Dates: start: 20090116

REACTIONS (2)
  - BASAL CELL CARCINOMA [None]
  - MUSCLE STRAIN [None]
